FAERS Safety Report 11630438 (Version 1)
Quarter: 2015Q4

REPORT INFORMATION
  Report Type: Spontaneous
  Country: US (occurrence: US)
  Receive Date: 20151014
  Receipt Date: 20151014
  Transmission Date: 20160304
  Serious: No
  Sender: FDA-Public Use
  Company Number: US-INDIVIOR-RB-71390-2014

PATIENT
  Age: 35 Year
  Sex: Female

DRUGS (1)
  1. SUBOXONE [Suspect]
     Active Substance: BUPRENORPHINE HYDROCHLORIDE\NALOXONE HYDROCHLORIDE
     Indication: PRODUCT USED FOR UNKNOWN INDICATION
     Dosage: UNK
     Route: 065

REACTIONS (11)
  - Formication [Unknown]
  - Tremor [Unknown]
  - Nausea [Unknown]
  - Vomiting [Unknown]
  - Constipation [Recovered/Resolved]
  - Feeling of body temperature change [Unknown]
  - Headache [Unknown]
  - Insomnia [Unknown]
  - Decreased appetite [Unknown]
  - Diarrhoea [Unknown]
  - Thirst [Unknown]
